FAERS Safety Report 21768498 (Version 1)
Quarter: 2022Q4

REPORT INFORMATION
  Report Type: Spontaneous
  Country: US (occurrence: None)
  Receive Date: 20221221
  Receipt Date: 20221221
  Transmission Date: 20230113
  Serious: No
  Sender: FDA-Public Use
  Company Number: None

PATIENT
  Age: 73 Year
  Sex: Male

DRUGS (3)
  1. POMALYST [Suspect]
     Active Substance: POMALIDOMIDE
     Indication: Plasma cell myeloma
     Dosage: FREQUENCY : DAILY;?
     Route: 048
     Dates: start: 20221123
  2. DARZALEX [Suspect]
     Active Substance: DARATUMUMAB
  3. DECADRON [Suspect]
     Active Substance: DEXAMETHASONE

REACTIONS (5)
  - Neutrophil count decreased [None]
  - Pollakiuria [None]
  - Dysuria [None]
  - Urinary tract infection [None]
  - Neutropenia [None]

NARRATIVE: CASE EVENT DATE: 20221218
